FAERS Safety Report 18661376 (Version 6)
Quarter: 2021Q4

REPORT INFORMATION
  Report Type: Report from Study
  Country: JP (occurrence: JP)
  Receive Date: 20201224
  Receipt Date: 20211214
  Transmission Date: 20220303
  Serious: Yes (Life-Threatening, Hospitalization, Other)
  Sender: FDA-Public Use
  Company Number: JP-ALNYLAM PHARMACEUTICALS, INC.-ALN-2020-002416

PATIENT

DRUGS (20)
  1. ONPATTRO [Suspect]
     Active Substance: PATISIRAN SODIUM
     Indication: Hereditary neuropathic amyloidosis
     Dosage: 12.9 MILLIGRAM
     Route: 041
     Dates: start: 20191217, end: 20191217
  2. ONPATTRO [Suspect]
     Active Substance: PATISIRAN SODIUM
     Dosage: 12.63 MILLIGRAM
     Route: 041
     Dates: start: 20200108, end: 20200108
  3. ONPATTRO [Suspect]
     Active Substance: PATISIRAN SODIUM
     Dosage: 12.39 MILLIGRAM
     Route: 041
     Dates: start: 20200129, end: 20200219
  4. ONPATTRO [Suspect]
     Active Substance: PATISIRAN SODIUM
     Dosage: 11.73 MILLIGRAM
     Route: 041
     Dates: start: 20200311, end: 20200408
  5. ONPATTRO [Suspect]
     Active Substance: PATISIRAN SODIUM
     Dosage: 11.76 MILLIGRAM
     Route: 041
     Dates: start: 20200501, end: 20200501
  6. ONPATTRO [Suspect]
     Active Substance: PATISIRAN SODIUM
     Dosage: 11.73 MILLIGRAM
     Route: 041
     Dates: start: 20200527, end: 20200812
  7. ONPATTRO [Suspect]
     Active Substance: PATISIRAN SODIUM
     Dosage: 11.1 MILLIGRAM
     Route: 041
     Dates: start: 20200902, end: 20201125
  8. SODIUM CHLORIDE [Suspect]
     Active Substance: SODIUM CHLORIDE
     Indication: Product used for unknown indication
     Dosage: 500 MILLILITER
     Route: 042
     Dates: start: 20191217, end: 20201128
  9. DECADRON [Suspect]
     Active Substance: DEXAMETHASONE
     Indication: Prophylaxis
     Dosage: 9.9 MILLIGRAM, SINGLE
     Route: 042
     Dates: start: 20191217, end: 20201125
  10. CALONAL [Concomitant]
     Active Substance: ACETAMINOPHEN
     Indication: Prophylaxis
     Dosage: 500 MILLIGRAM, SINGLE
     Route: 065
     Dates: start: 20191217, end: 20201125
  11. CHLORPHENIRAMINE MALEATE [Concomitant]
     Active Substance: CHLORPHENIRAMINE MALEATE
     Indication: Prophylaxis
     Dosage: 10 MILLIGRAM, SINGLE
     Route: 065
     Dates: start: 20191217, end: 20201125
  12. GASTER [Concomitant]
     Active Substance: FAMOTIDINE
     Indication: Prophylaxis
     Dosage: 20 MILLIGRAM, SINGLE
     Route: 065
     Dates: start: 20191217, end: 20201125
  13. LASIX [Concomitant]
     Active Substance: FUROSEMIDE
     Indication: Cardiac failure chronic
     Dosage: 40 MILLIGRAM, BID
     Route: 065
     Dates: end: 202010
  14. LASIX [Concomitant]
     Active Substance: FUROSEMIDE
     Indication: Hereditary neuropathic amyloidosis
     Dosage: 120 MILLIGRAM, BID
     Route: 065
     Dates: start: 202010, end: 20201217
  15. LASIX [Concomitant]
     Active Substance: FUROSEMIDE
     Dosage: 160 MILLIGRAM, BID
     Route: 065
     Dates: start: 20201218
  16. ALDACTONE [Concomitant]
     Active Substance: SPIRONOLACTONE
     Indication: Cardiac failure chronic
     Dosage: 12.5 MILLIGRAM, QD
     Route: 065
  17. ALDACTONE [Concomitant]
     Active Substance: SPIRONOLACTONE
     Indication: Hereditary neuropathic amyloidosis
  18. SAMSCA [Concomitant]
     Active Substance: TOLVAPTAN
     Indication: Cardiac failure chronic
     Dosage: 3.75 MILLIGRAM, QD
     Route: 065
     Dates: end: 20200108
  19. SAMSCA [Concomitant]
     Active Substance: TOLVAPTAN
     Indication: Hereditary neuropathic amyloidosis
     Dosage: 7.5 MILLIGRAM, QD
     Route: 065
     Dates: start: 20200108
  20. VITAMINS [Concomitant]
     Active Substance: VITAMINS
     Indication: Prophylaxis
     Dosage: 1 GRAM, QD
     Route: 048
     Dates: start: 20191218

REACTIONS (5)
  - N-terminal prohormone brain natriuretic peptide increased [Recovering/Resolving]
  - Brain natriuretic peptide increased [Recovering/Resolving]
  - Weight increased [Recovering/Resolving]
  - Cardiac failure [Recovering/Resolving]
  - Herpes zoster [Recovering/Resolving]

NARRATIVE: CASE EVENT DATE: 20201125
